FAERS Safety Report 21282251 (Version 1)
Quarter: 2022Q3

REPORT INFORMATION
  Report Type: Spontaneous
  Country: US (occurrence: US)
  Receive Date: 20220901
  Receipt Date: 20220901
  Transmission Date: 20221027
  Serious: No
  Sender: FDA-Public Use
  Company Number: US-ABBVIE-22K-163-4478545-00

PATIENT

DRUGS (1)
  1. HUMIRA [Suspect]
     Active Substance: ADALIMUMAB
     Indication: Rheumatoid arthritis
     Route: 058

REACTIONS (13)
  - Fatigue [Unknown]
  - Photophobia [Unknown]
  - Temperature intolerance [Unknown]
  - Hypothyroidism [Unknown]
  - Autoimmune disorder [Unknown]
  - Pruritus [Unknown]
  - Hepatic steatosis [Unknown]
  - Night sweats [Unknown]
  - Injection site pruritus [Unknown]
  - Headache [Unknown]
  - Nausea [Unknown]
  - Hypertension [Unknown]
  - Pain [Unknown]
